FAERS Safety Report 6173980-4 (Version None)
Quarter: 2009Q2

REPORT INFORMATION
  Report Type: 
  Country: None (occurrence: None)
  Receive Date: 20090430
  Receipt Date: 20090316
  Transmission Date: 20091009
  Serious: Yes (Hospitalization)
  Sender: FDA-Public Use
  Company Number: DE-PFIZER INC-2008091344

PATIENT

DRUGS (5)
  1. BLINDED *PLACEBO [Suspect]
     Indication: HYPERTONIC BLADDER
     Dosage: UNK
     Route: 048
     Dates: start: 20080929, end: 20081106
  2. BLINDED FESOTERODINE [Suspect]
     Indication: HYPERTONIC BLADDER
     Dosage: UNK
     Route: 048
     Dates: start: 20080929, end: 20081106
  3. TOLTERODINE TARTRATE [Suspect]
     Indication: HYPERTONIC BLADDER
     Dosage: UNK
     Route: 048
     Dates: start: 20080929, end: 20081106
  4. LEVOTHYROXINE SODIUM [Concomitant]
     Route: 048
     Dates: start: 20040101
  5. RUDOTEL [Concomitant]
     Route: 048
     Dates: start: 20080201

REACTIONS (1)
  - PYELONEPHRITIS ACUTE [None]
